FAERS Safety Report 10582731 (Version 2)
Quarter: 2014Q4

REPORT INFORMATION
  Report Type: Spontaneous
  Country: IT (occurrence: IT)
  Receive Date: 20141113
  Receipt Date: 20141120
  Transmission Date: 20150529
  Serious: Yes (Hospitalization)
  Sender: FDA-Public Use
  Company Number: PHHY2014IT146038

PATIENT
  Age: 72 Year
  Sex: Female

DRUGS (7)
  1. LORCOMBI [Concomitant]
     Route: 065
  2. LANSOPRAZOLE. [Concomitant]
     Active Substance: LANSOPRAZOLE
     Route: 065
  3. RABEPRAZOLE [Suspect]
     Active Substance: RABEPRAZOLE
     Indication: HELICOBACTER INFECTION
     Dosage: 20 MG, QD
     Route: 048
     Dates: start: 20141029, end: 20141104
  4. CARDIOASPIRIN [Concomitant]
     Active Substance: ASPIRIN
     Route: 065
  5. LEVOXACIN [Suspect]
     Active Substance: LEVOFLOXACIN
     Indication: HELICOBACTER INFECTION
     Dosage: 1 G, QD
     Route: 048
     Dates: start: 20141029, end: 20141104
  6. PROVISACOR [Concomitant]
     Active Substance: ROSUVASTATIN
     Route: 065
  7. AMOXICILLIN SANDOZ [Suspect]
     Active Substance: AMOXICILLIN
     Indication: HELICOBACTER INFECTION
     Dosage: 2 G, QD
     Route: 048
     Dates: start: 20141029, end: 20141104

REACTIONS (3)
  - Diarrhoea [Not Recovered/Not Resolved]
  - Ventricular fibrillation [Not Recovered/Not Resolved]
  - Hypokalaemia [Not Recovered/Not Resolved]

NARRATIVE: CASE EVENT DATE: 20141104
